FAERS Safety Report 11300686 (Version 1)
Quarter: 2015Q3

REPORT INFORMATION
  Report Type: Spontaneous
  Country: US (occurrence: US)
  Receive Date: 20150722
  Receipt Date: 20150722
  Transmission Date: 20151125
  Serious: No
  Sender: FDA-Public Use
  Company Number: US-ELI LILLY AND COMPANY-US201209004412

PATIENT
  Sex: Male
  Weight: 47 kg

DRUGS (2)
  1. HUMATROPE [Suspect]
     Active Substance: SOMATROPIN
     Dosage: 5.3 MG, QD
     Dates: start: 201203
  2. HUMATROPE [Suspect]
     Active Substance: SOMATROPIN
     Dosage: 2.6 MG, QD
     Dates: start: 201203

REACTIONS (1)
  - Headache [Unknown]
